FAERS Safety Report 9743440 (Version 2)
Quarter: 2013Q4

REPORT INFORMATION
  Report Type: Spontaneous
  Country: US (occurrence: US)
  Receive Date: 20131210
  Receipt Date: 20131212
  Transmission Date: 20140711
  Serious: Yes (Other)
  Sender: FDA-Public Use
  Company Number: US-TEVA-379762USA

PATIENT
  Age: 29 Year
  Sex: Female
  Weight: 69.46 kg

DRUGS (2)
  1. PARAGARD 380A [Suspect]
     Indication: CONTRACEPTION
     Route: 015
     Dates: start: 20121204, end: 20121204
  2. PARAGARD 380A [Suspect]
     Route: 015
     Dates: start: 20130108, end: 20130108

REACTIONS (1)
  - Uterine perforation [Recovered/Resolved]
